FAERS Safety Report 5702404-3 (Version None)
Quarter: 2008Q2

REPORT INFORMATION
  Report Type: 
  Country: None (occurrence: None)
  Receive Date: 20080411
  Receipt Date: 20080328
  Transmission Date: 20081010
  Serious: Yes (Hospitalization)
  Sender: FDA-Public Use
  Company Number: DE-BAYER-200815640GPV

PATIENT
  Age: 58 Year
  Sex: Male

DRUGS (6)
  1. ASPIRIN [Suspect]
     Indication: DRUG USE FOR UNKNOWN INDICATION
     Route: 065
  2. MICARDIS [Suspect]
     Indication: CEREBROVASCULAR ACCIDENT PROPHYLAXIS
     Route: 048
     Dates: start: 20020827
  3. RAMIPRIL [Suspect]
     Indication: CEREBROVASCULAR ACCIDENT PROPHYLAXIS
     Route: 048
     Dates: start: 20020827
  4. DILTIAZEM [Suspect]
     Indication: DRUG USE FOR UNKNOWN INDICATION
  5. PRAVACHOL [Suspect]
     Indication: DRUG USE FOR UNKNOWN INDICATION
  6. DANAZOL [Concomitant]
     Indication: DRUG USE FOR UNKNOWN INDICATION

REACTIONS (1)
  - ANGIOEDEMA [None]
